FAERS Safety Report 8089048-6 (Version None)
Quarter: 2012Q1

REPORT INFORMATION
  Report Type: 
  Country: None (occurrence: None)
  Receive Date: 20120128
  Receipt Date: 20110727
  Transmission Date: 20120608
  Serious: No
  Sender: FDA-Public Use
  Company Number: US-ABBOTT-11P-163-0705897-00

PATIENT
  Sex: Female

DRUGS (14)
  1. FENTANYL-100 [Concomitant]
     Indication: PAIN
  2. VITAMIN D [Concomitant]
     Indication: VITAMIN SUPPLEMENTATION
  3. DILTIAZEM HCL [Concomitant]
     Indication: MITRAL VALVE PROLAPSE
  4. CYMBALTA [Concomitant]
     Indication: FIBROMYALGIA
  5. OXYCODONE HCL [Concomitant]
     Indication: BREAKTHROUGH PAIN
  6. ASCORBIC ACID [Concomitant]
     Indication: VITAMIN SUPPLEMENTATION
  7. TIZANIDINE HCL [Concomitant]
     Indication: MUSCLE SPASMS
  8. HUMIRA [Suspect]
     Indication: CROHN'S DISEASE
     Dosage: 160 MG SQ DAY 1, 40MG EVERY TWO WEEK
     Dates: start: 20110214
  9. TOPAMAX [Concomitant]
     Indication: FIBROMYALGIA
  10. NEXIUM [Concomitant]
     Indication: GASTROOESOPHAGEAL REFLUX DISEASE
  11. B12 SHOT [Concomitant]
     Indication: VITAMIN SUPPLEMENTATION
  12. COLESTIPOL HYDROCHLORIDE [Concomitant]
     Indication: CROHN'S DISEASE
  13. CIPROFLOXACIN [Concomitant]
     Indication: CROHN'S DISEASE
  14. PROMETHAZINE [Concomitant]
     Indication: NAUSEA

REACTIONS (5)
  - OROPHARYNGEAL PAIN [None]
  - HEADACHE [None]
  - MALAISE [None]
  - INJECTION SITE PAIN [None]
  - HYPOAESTHESIA [None]
